FAERS Safety Report 12776951 (Version 1)
Quarter: 2016Q3

REPORT INFORMATION
  Report Type: Spontaneous
  Country: TW (occurrence: TW)
  Receive Date: 20160923
  Receipt Date: 20160923
  Transmission Date: 20161109
  Serious: Yes (Death, Hospitalization)
  Sender: FDA-Public Use
  Company Number: PHHY2016TW130632

PATIENT
  Age: 24 Year
  Sex: Male
  Weight: 76 kg

DRUGS (2)
  1. CARBAMAZEPINE. [Suspect]
     Active Substance: CARBAMAZEPINE
     Indication: EPILEPSY
     Dosage: 200 MG, QD
     Route: 065
     Dates: start: 19891031
  2. CARBAMAZEPINE. [Suspect]
     Active Substance: CARBAMAZEPINE
     Dosage: 200 MG, BID
     Route: 065
     Dates: start: 19891102

REACTIONS (6)
  - Anticonvulsant drug level increased [Unknown]
  - Rash [Unknown]
  - Pneumonia aspiration [Unknown]
  - Epilepsy [Fatal]
  - Renal impairment [Unknown]
  - Eosinophil count increased [Unknown]
